FAERS Safety Report 13305988 (Version 1)
Quarter: 2017Q1

REPORT INFORMATION
  Report Type: Spontaneous
  Country: DE (occurrence: DE)
  Receive Date: 20170308
  Receipt Date: 20170308
  Transmission Date: 20170428
  Serious: Yes (Hospitalization)
  Sender: FDA-Public Use
  Company Number: DE-AUROBINDO-AUR-APL-2017-30649

PATIENT
  Sex: Female

DRUGS (5)
  1. ARIPIPRAZOL [Concomitant]
     Active Substance: ARIPIPRAZOLE
     Indication: PRODUCT USED FOR UNKNOWN INDICATION
     Dosage: 10 MG, DAILY
     Route: 065
     Dates: start: 201006
  2. RISPERIDONE 4MG [Suspect]
     Active Substance: RISPERIDONE
     Indication: PRODUCT USED FOR UNKNOWN INDICATION
     Dosage: 4 MG, DAILY
     Route: 048
     Dates: start: 201002, end: 201005
  3. RISPERIDONE 4MG [Interacting]
     Active Substance: RISPERIDONE
     Dosage: 2 MG, DAILY
     Route: 048
     Dates: start: 201005, end: 201006
  4. CIPRALEX [Interacting]
     Active Substance: ESCITALOPRAM OXALATE
     Dosage: 25 MG, DAILY
     Route: 048
     Dates: start: 201006
  5. CIPRALEX [Interacting]
     Active Substance: ESCITALOPRAM OXALATE
     Indication: PRODUCT USED FOR UNKNOWN INDICATION
     Dosage: 20 MG, DAILY
     Route: 048
     Dates: start: 201005, end: 201006

REACTIONS (2)
  - Drug interaction [Unknown]
  - Galactorrhoea [Recovered/Resolved]
